FAERS Safety Report 8812319 (Version 1)
Quarter: 2012Q4

REPORT INFORMATION
  Report Type: 
  Country: US (occurrence: US)
  Receive Date: 20120927
  Receipt Date: 20120927
  Transmission Date: 20130627
  Serious: Yes (Hospitalization)
  Sender: FDA-Public Use
  Company Number: US-ROCHE-1104186

PATIENT
  Sex: Male

DRUGS (3)
  1. AVASTIN [Suspect]
     Indication: BREAST CANCER FEMALE
     Route: 065
     Dates: start: 20060302
  2. TAXOL [Concomitant]
  3. AREDIA [Concomitant]
     Indication: METASTASES TO BONE
     Route: 065

REACTIONS (2)
  - Convulsion [Unknown]
  - Intestinal obstruction [Unknown]
